FAERS Safety Report 21468920 (Version 4)
Quarter: 2022Q4

REPORT INFORMATION
  Report Type: Report from Study
  Country: US (occurrence: US)
  Receive Date: 20221018
  Receipt Date: 20221222
  Transmission Date: 20230112
  Serious: Yes (Hospitalization)
  Sender: FDA-Public Use
  Company Number: US-ORPHANEU-2022005014

PATIENT

DRUGS (1)
  1. CARBAGLU [Suspect]
     Active Substance: CARGLUMIC ACID
     Indication: Methylmalonic aciduria
     Dosage: 200 MILLIGRAM IN THE MORNING AND 100 MILLIGRAM IN THE EVENING
     Dates: start: 20201223

REACTIONS (3)
  - Blood glucose abnormal [Recovered/Resolved]
  - Ammonia increased [Recovered/Resolved]
  - Muscular weakness [Recovered/Resolved]

NARRATIVE: CASE EVENT DATE: 20220101
